FAERS Safety Report 4687241-3 (Version None)
Quarter: 2005Q2

REPORT INFORMATION
  Report Type: 
  Country: None (occurrence: None)
  Receive Date: 20050606
  Receipt Date: 20050524
  Transmission Date: 20051028
  Serious: Yes (Hospitalization, Other)
  Sender: FDA-Public Use
  Company Number: 2005056892

PATIENT
  Age: 35 Year
  Sex: Female

DRUGS (7)
  1. DETROL [Suspect]
     Indication: HYPERTONIC BLADDER
     Dosage: 4 MG (2 MG, 2 IN 1 D), ORAL
     Route: 048
     Dates: start: 20050329, end: 20050101
  2. OXYBUTYNIN CHLORIDE (OXYBUTYNIN HYDROCHLORIDE) [Suspect]
     Indication: ILL-DEFINED DISORDER
     Dates: start: 20050426
  3. ANTIBIOTICS (ANTIBIOTICS) [Suspect]
     Indication: URINARY TRACT INFECTION
  4. METHYLPHENIDATE HYDROCHLORDE (METHYLPHENIDATE HYDROCHLORIDE) [Concomitant]
  5. DOCUSATE SODIUM (DOCUSATE SODIUM) [Concomitant]
  6. CLONAZEPAM [Concomitant]
  7. SOLPADEINE (CODEINE PHOSPHATE, PARACETAMOL) [Concomitant]

REACTIONS (2)
  - ANURIA [None]
  - POLLAKIURIA [None]
